FAERS Safety Report 5614622-3 (Version None)
Quarter: 2008Q1

REPORT INFORMATION
  Report Type: 
  Country: None (occurrence: None)
  Receive Date: 20080131
  Receipt Date: 20080116
  Transmission Date: 20080703
  Serious: Yes (Hospitalization)
  Sender: FDA-Public Use
  Company Number: 8028979

PATIENT
  Age: 69 Year
  Sex: Male

DRUGS (4)
  1. KEPPRA [Suspect]
     Indication: CONVULSION
     Dosage: PO
     Route: 048
     Dates: end: 20080107
  2. KEPPRA [Suspect]
     Indication: CONVULSION
     Dosage: 2500 MG D IV
     Route: 042
     Dates: start: 20080107
  3. PEPCID [Concomitant]
  4. ZOLOFT [Concomitant]

REACTIONS (8)
  - ERYTHEMA [None]
  - INFUSION SITE EXTRAVASATION [None]
  - INJECTION SITE DISCOLOURATION [None]
  - INJECTION SITE ERYTHEMA [None]
  - INJECTION SITE REACTION [None]
  - INJECTION SITE SWELLING [None]
  - OEDEMA PERIPHERAL [None]
  - PNEUMONIA [None]
